FAERS Safety Report 11856364 (Version 1)
Quarter: 2015Q4

REPORT INFORMATION
  Report Type: Spontaneous
  Country: None (occurrence: None)
  Receive Date: 20151218
  Receipt Date: 20151218
  Transmission Date: 20160305
  Serious: No
  Sender: FDA-Public Use
  Company Number: None

PATIENT
  Age: 25 Year
  Sex: Male
  Weight: 68.04 kg

DRUGS (2)
  1. DAILY MULTIVITAMINS [Concomitant]
  2. FINASTERIDE 1MG [Suspect]
     Active Substance: FINASTERIDE
     Indication: ALOPECIA
     Dosage: .25 PILLS
     Route: 048
     Dates: start: 20141101, end: 20150201

REACTIONS (6)
  - Feeling abnormal [None]
  - Sexual dysfunction [None]
  - Memory impairment [None]
  - Headache [None]
  - Fatigue [None]
  - Cognitive disorder [None]
